FAERS Safety Report 15018477 (Version 1)
Quarter: 2018Q2

REPORT INFORMATION
  Report Type: Spontaneous
  Country: US (occurrence: US)
  Receive Date: 20180523
  Receipt Date: 20180523
  Transmission Date: 20180711
  Serious: No
  Sender: FDA-Public Use
  Company Number: None

PATIENT
  Sex: Female

DRUGS (2)
  1. TYMLOS [Suspect]
     Active Substance: ABALOPARATIDE
     Indication: OSTEOPOROTIC FRACTURE
     Route: 058
     Dates: start: 201708
  2. ZOFRAN [Suspect]
     Active Substance: ONDANSETRON HYDROCHLORIDE

REACTIONS (3)
  - Dysgeusia [None]
  - Nausea [None]
  - Constipation [None]
